FAERS Safety Report 24113065 (Version 3)
Quarter: 2024Q3

REPORT INFORMATION
  Report Type: Spontaneous
  Country: DE (occurrence: DE)
  Receive Date: 20240719
  Receipt Date: 20240726
  Transmission Date: 20241017
  Serious: Yes (Hospitalization)
  Sender: EISAI
  Company Number: DE-Eisai-EC-2024-170178

PATIENT
  Sex: Male
  Weight: 14.3 kg

DRUGS (2)
  1. FYCOMPA [Suspect]
     Active Substance: PERAMPANEL
     Indication: Product used for unknown indication
     Route: 048
  2. FYCOMPA [Suspect]
     Active Substance: PERAMPANEL
     Dosage: REDUCED DOSE (DOSE AND FREQUENCY UNKNOWN)
     Route: 048

REACTIONS (3)
  - Bradycardia [Recovered/Resolved]
  - Fatigue [Recovered/Resolved]
  - Anticonvulsant drug level increased [Unknown]
